FAERS Safety Report 14684556 (Version 3)
Quarter: 2019Q1

REPORT INFORMATION
  Report Type: Report from Study
  Country: US (occurrence: US)
  Receive Date: 20180327
  Receipt Date: 20190117
  Transmission Date: 20190417
  Serious: Yes (Other)
  Sender: FDA-Public Use
  Company Number: US-JNJFOC-20140318128

PATIENT
  Sex: Female

DRUGS (4)
  1. FENTANYL. [Suspect]
     Active Substance: FENTANYL
     Indication: PRODUCT USED FOR UNKNOWN INDICATION
     Route: 065
  2. PERCOCET [Suspect]
     Active Substance: ACETAMINOPHEN\OXYCODONE HYDROCHLORIDE
     Indication: PAIN MANAGEMENT
     Route: 065
  3. DURAGESIC [Suspect]
     Active Substance: FENTANYL
     Indication: PAIN MANAGEMENT
     Route: 062
  4. ROBAXIN [Suspect]
     Active Substance: METHOCARBAMOL
     Indication: MUSCLE SPASMS
     Route: 065

REACTIONS (8)
  - Decreased activity [Unknown]
  - Skin erosion [Unknown]
  - Application site haemorrhage [Unknown]
  - Pruritus [Unknown]
  - Drug ineffective [Unknown]
  - Application site pruritus [Unknown]
  - Pain [Unknown]
  - Skin haemorrhage [Unknown]
